FAERS Safety Report 14387213 (Version 2)
Quarter: 2018Q2

REPORT INFORMATION
  Report Type: Spontaneous
  Country: US (occurrence: US)
  Receive Date: 20180115
  Receipt Date: 20180601
  Transmission Date: 20180711
  Serious: Yes (Other)
  Sender: FDA-Public Use
  Company Number: US-SA-2017SA171221

PATIENT
  Age: 45 Year
  Sex: Female
  Weight: 61.6 kg

DRUGS (4)
  1. NEOSAR [Concomitant]
     Active Substance: CYCLOPHOSPHAMIDE
  2. TAXOTERE [Suspect]
     Active Substance: DOCETAXEL
     Indication: BREAST CANCER FEMALE
     Dosage: UNK UNK,QOW
     Route: 051
     Dates: start: 20040601, end: 20040601
  3. ADRIAMYCIN [DOXORUBICIN] [Concomitant]
  4. TAXOTERE [Suspect]
     Active Substance: DOCETAXEL
     Dosage: UNK UNK,QOW
     Route: 051
     Dates: start: 20040914, end: 20040914

REACTIONS (6)
  - Anxiety [Unknown]
  - Psychological trauma [Unknown]
  - Emotional distress [Unknown]
  - Alopecia [Not Recovered/Not Resolved]
  - Pain [Unknown]
  - Impaired quality of life [Unknown]

NARRATIVE: CASE EVENT DATE: 20050901
